FAERS Safety Report 21379671 (Version 1)
Quarter: 2022Q3

REPORT INFORMATION
  Report Type: Spontaneous
  Country: US (occurrence: None)
  Receive Date: 20220923
  Receipt Date: 20220923
  Transmission Date: 20221026
  Serious: No
  Sender: FDA-Public Use
  Company Number: None

PATIENT
  Age: 76 Year
  Sex: Male

DRUGS (1)
  1. LEVOFLOXACIN [Suspect]
     Active Substance: LEVOFLOXACIN
     Indication: Infection
     Dosage: 750 MG EVERY DAY PO
     Route: 048
     Dates: start: 20220614, end: 20220616

REACTIONS (2)
  - Tendonitis [None]
  - Mobility decreased [None]

NARRATIVE: CASE EVENT DATE: 20220615
